FAERS Safety Report 18632970 (Version 1)
Quarter: 2020Q4

REPORT INFORMATION
  Report Type: Spontaneous
  Country: US (occurrence: US)
  Receive Date: 20201217
  Receipt Date: 20201217
  Transmission Date: 20210114
  Serious: Yes (Other)
  Sender: FDA-Public Use
  Company Number: None

PATIENT
  Age: 53 Year
  Sex: Female
  Weight: 68.4 kg

DRUGS (1)
  1. AIMOVIG [Suspect]
     Active Substance: ERENUMAB-AOOE
     Indication: MIGRAINE
     Dosage: ?          OTHER FREQUENCY:MONTHLY;?
     Route: 058
     Dates: start: 20190801, end: 20201012

REACTIONS (7)
  - Myalgia [None]
  - Palpitations [None]
  - Weight increased [None]
  - Hot flush [None]
  - Therapy cessation [None]
  - Panic reaction [None]
  - Hypertension [None]

NARRATIVE: CASE EVENT DATE: 20201208
